FAERS Safety Report 9959690 (Version 1)
Quarter: 2014Q1

REPORT INFORMATION
  Report Type: Report from Study
  Country: US (occurrence: US)
  Receive Date: 20140305
  Receipt Date: 20140305
  Transmission Date: 20141002
  Serious: No
  Sender: FDA-Public Use
  Company Number: US-ABBVIE-13P-163-1107265-00

PATIENT
  Sex: Female

DRUGS (5)
  1. HUMIRA [Suspect]
     Indication: COLITIS ULCERATIVE
     Route: 058
     Dates: start: 20130330, end: 20130330
  2. HUMIRA [Suspect]
     Route: 058
     Dates: start: 20130331, end: 20130331
  3. HUMIRA [Suspect]
     Route: 058
  4. ASACOL [Concomitant]
     Indication: COLITIS ULCERATIVE
  5. TIME RELEASED STEROID [Concomitant]
     Indication: PRODUCT USED FOR UNKNOWN INDICATION
     Dates: start: 201306

REACTIONS (4)
  - Frequent bowel movements [Unknown]
  - Flatulence [Unknown]
  - Defaecation urgency [Unknown]
  - Faecal incontinence [Unknown]
